FAERS Safety Report 19129562 (Version 3)
Quarter: 2021Q2

REPORT INFORMATION
  Report Type: Spontaneous
  Country: JP (occurrence: JP)
  Receive Date: 20210413
  Receipt Date: 20210610
  Transmission Date: 20210717
  Serious: Yes (Other)
  Sender: FDA-Public Use
  Company Number: JP-NOVOPROD-799238

PATIENT
  Sex: Female

DRUGS (2)
  1. TRESIBA [Suspect]
     Active Substance: INSULIN DEGLUDEC
     Indication: TYPE 1 DIABETES MELLITUS
     Dosage: AROUND 15 IU
     Route: 058
     Dates: start: 2014
  2. HUMALOG [Suspect]
     Active Substance: INSULIN LISPRO
     Indication: TYPE 1 DIABETES MELLITUS
     Dosage: 10?12IU, BEFORE EVERY MEAL
     Route: 058

REACTIONS (9)
  - Hyperglycaemia [Unknown]
  - Hypoglycaemia [Unknown]
  - Product prescribing error [Unknown]
  - Device malfunction [Unknown]
  - Glycosylated haemoglobin increased [Unknown]
  - Liquid product physical issue [Unknown]
  - Device failure [Unknown]
  - Hyperglycaemia [Unknown]
  - Drug ineffective [Unknown]

NARRATIVE: CASE EVENT DATE: 202008
